FAERS Safety Report 8135239-5 (Version None)
Quarter: 2012Q1

REPORT INFORMATION
  Report Type: 
  Country: None (occurrence: None)
  Receive Date: 20120214
  Receipt Date: 20120130
  Transmission Date: 20120608
  Serious: Yes (Hospitalization)
  Sender: FDA-Public Use
  Company Number: BE-ROCHE-1006417

PATIENT
  Sex: Female
  Weight: 66.5 kg

DRUGS (15)
  1. BISOPROLOL FUMARATE [Concomitant]
  2. PANTOMED (BELGIUM) [Concomitant]
  3. NOLVADEX [Concomitant]
  4. ASPIRIN [Concomitant]
  5. AZA [Concomitant]
     Dates: start: 20111025
  6. EUSAPRIM [Concomitant]
     Dosage: 400/80 MG
  7. SOTALOL HCL [Concomitant]
     Dosage: 2X 0.25 W/OL
  8. PRAVASTATIN [Concomitant]
     Dosage: BLOE PRAVASTATINE
  9. METFORMIN HCL [Concomitant]
  10. MYCOPHENOLATE MOFETIL (CELLCEPT) [Suspect]
     Indication: VASCULITIS
     Dates: start: 20110615, end: 20111025
  11. PRAREDUCT [Concomitant]
  12. MOTILIUM (BELGIUM) [Concomitant]
  13. PREDNISOLONE [Concomitant]
     Dates: start: 20111015
  14. SOTALOL HCL [Concomitant]
  15. STEOVIT D3 [Concomitant]
     Dosage: 1000/800 MG

REACTIONS (3)
  - WEGENER'S GRANULOMATOSIS [None]
  - VOMITING [None]
  - OESOPHAGEAL CANDIDIASIS [None]
